FAERS Safety Report 11529185 (Version 1)
Quarter: 2015Q3

REPORT INFORMATION
  Report Type: Spontaneous
  Country: US (occurrence: US)
  Receive Date: 20150921
  Receipt Date: 20150921
  Transmission Date: 20151125
  Serious: Yes (Other)
  Sender: FDA-Public Use
  Company Number: US-ELI_LILLY_AND_COMPANY-US201509003486

PATIENT
  Sex: Male

DRUGS (2)
  1. HUMATROPE [Suspect]
     Active Substance: SOMATROPIN
     Dosage: 0.4 MG, QD
     Route: 065
  2. HUMATROPE [Suspect]
     Active Substance: SOMATROPIN
     Indication: GROWTH HORMONE DEFICIENCY
     Dosage: 2 MG, BID
     Route: 065

REACTIONS (8)
  - Infection [Unknown]
  - Hyperhidrosis [Unknown]
  - Impaired healing [Unknown]
  - Post procedural haemorrhage [Unknown]
  - Scrotal swelling [Unknown]
  - Testicular pain [Unknown]
  - Blood growth hormone increased [Unknown]
  - Gait disturbance [Unknown]
